FAERS Safety Report 8328646-9 (Version None)
Quarter: 2012Q2

REPORT INFORMATION
  Report Type: 
  Country: None (occurrence: None)
  Receive Date: 20120502
  Receipt Date: 20120430
  Transmission Date: 20120825
  Serious: No
  Sender: FDA-Public Use
  Company Number: US-PFIZER INC-2012106326

PATIENT
  Sex: Female
  Weight: 59 kg

DRUGS (4)
  1. BUPROPION [Concomitant]
     Dosage: 100 MG, 1X/DAY
  2. FLUOXETINE [Concomitant]
     Dosage: 60 MG, 1X/DAY
  3. ZIPRASIDONE HCL [Suspect]
     Indication: OBSESSIVE-COMPULSIVE DISORDER
     Dosage: 40 MG, 2X/DAY
     Route: 048
     Dates: start: 20120416, end: 20120426
  4. CENESTIN [Concomitant]
     Dosage: 0.9 MG, UNK

REACTIONS (2)
  - EYE SWELLING [None]
  - EYELID MARGIN CRUSTING [None]
